FAERS Safety Report 16522243 (Version 1)
Quarter: 2019Q3

REPORT INFORMATION
  Report Type: Other
  Country: DE (occurrence: DE)
  Receive Date: 20190703
  Receipt Date: 20190703
  Transmission Date: 20191004
  Serious: No
  Sender: FDA-Public Use
  Company Number: DE-LUPIN PHARMACEUTICALS INC.-2018-06853

PATIENT
  Age: 71 Year
  Sex: Female
  Weight: 63 kg

DRUGS (6)
  1. TIOBLIS [Suspect]
     Active Substance: ATORVASTATIN CALCIUM\EZETIMIBE
     Indication: LIPIDS INCREASED
     Dosage: 1 DF, UNK,
     Route: 048
     Dates: start: 2015, end: 201712
  2. EZETIMIBE. [Suspect]
     Active Substance: EZETIMIBE
     Indication: LIPIDS INCREASED
     Dosage: 10 MG, UNK
     Route: 048
     Dates: start: 200707, end: 200804
  3. SIMVASTATIN. [Suspect]
     Active Substance: SIMVASTATIN
     Indication: LIPIDS INCREASED
     Dosage: 20 MG, UNK
     Route: 048
     Dates: start: 201005
  4. LOCOL                              /01224502/ [Suspect]
     Active Substance: FLUVASTATIN SODIUM
     Indication: LIPIDS INCREASED
     Dosage: 80 MG, UNK
     Route: 048
     Dates: start: 2006, end: 2007
  5. LOCOL                              /01224502/ [Suspect]
     Active Substance: FLUVASTATIN SODIUM
     Dosage: 40 MG, UNK
     Route: 048
     Dates: start: 200707, end: 200804
  6. FLUVASTATIN [Suspect]
     Active Substance: FLUVASTATIN SODIUM
     Indication: LIPIDS INCREASED
     Dosage: 40 MG, UNK
     Route: 048
     Dates: start: 2008, end: 201712

REACTIONS (2)
  - Pain in extremity [Recovered/Resolved]
  - Muscle spasms [Recovered/Resolved]
